FAERS Safety Report 8780904 (Version 1)
Quarter: 2012Q4

REPORT INFORMATION
  Report Type: 
  Country: US (occurrence: US)
  Receive Date: 20120913
  Receipt Date: 20120913
  Transmission Date: 20130627
  Serious: No
  Sender: FDA-Public Use
  Company Number: US-009507513-1209USA002675

PATIENT

DRUGS (3)
  1. DULERA [Suspect]
     Indication: ASTHMA
     Dosage: 100/5
     Dates: start: 20120831, end: 20120905
  2. PROAIR (ALBUTEROL SULFATE) [Concomitant]
  3. OMEPRAZOLE [Concomitant]

REACTIONS (1)
  - Asthma [Unknown]
